FAERS Safety Report 21943451 (Version 1)
Quarter: 2023Q1

REPORT INFORMATION
  Report Type: Report from Study
  Country: CA (occurrence: CA)
  Receive Date: 20230202
  Receipt Date: 20230202
  Transmission Date: 20230418
  Serious: Yes (Hospitalization)
  Sender: FDA-Public Use
  Company Number: CA-BEH-2023154708

PATIENT
  Age: 90 Year
  Sex: Female
  Weight: 57.2 kg

DRUGS (1)
  1. HIZENTRA [Suspect]
     Active Substance: HUMAN IMMUNOGLOBULIN G
     Indication: Primary immunodeficiency syndrome
     Dosage: 6 GRAM, QW
     Route: 065
     Dates: start: 20221122

REACTIONS (3)
  - Heart rate decreased [Unknown]
  - Dizziness [Unknown]
  - Pallor [Unknown]

NARRATIVE: CASE EVENT DATE: 20230115
